FAERS Safety Report 7382204-1 (Version None)
Quarter: 2011Q1

REPORT INFORMATION
  Report Type: 
  Country: None (occurrence: None)
  Receive Date: 20110329
  Receipt Date: 20101227
  Transmission Date: 20110831
  Serious: No
  Sender: FDA-Public Use
  Company Number: US-BAYER-2011-025411

PATIENT
  Sex: Female
  Weight: 54 kg

DRUGS (1)
  1. ONE A DAY WOMEN'S ACTIVE METABOLISM [Suspect]
     Indication: VITAMIN SUPPLEMENTATION
     Dosage: UNK UNK, BID
     Dates: end: 20101224

REACTIONS (1)
  - HEADACHE [None]
